FAERS Safety Report 13221854 (Version 2)
Quarter: 2017Q1

REPORT INFORMATION
  Report Type: Spontaneous
  Country: US (occurrence: BR)
  Receive Date: 20170211
  Receipt Date: 20170221
  Transmission Date: 20170428
  Serious: Yes (Hospitalization)
  Sender: FDA-Public Use
  Company Number: US-SUNOVION-2017SUN000590

PATIENT
  Sex: Female
  Weight: 68 kg

DRUGS (9)
  1. INDACATEROL [Suspect]
     Active Substance: INDACATEROL
     Indication: CHRONIC OBSTRUCTIVE PULMONARY DISEASE
     Dosage: 150 ?G, QID
     Route: 055
  2. MODURETIC 5-50 [Concomitant]
     Active Substance: AMILORIDE HYDROCHLORIDE\HYDROCHLOROTHIAZIDE
     Dosage: 25 MG, UNK
  3. DRAMIN B6 [Concomitant]
     Dosage: 50/10 MG
     Dates: start: 2013
  4. PERIDAL [Concomitant]
     Dosage: 10 MG, UNK
  5. TRAMAL [Concomitant]
     Active Substance: TRAMADOL
     Dosage: UNK
     Dates: start: 2013
  6. MENELAT [Concomitant]
     Active Substance: MIRTAZAPINE
     Dosage: UNK
  7. INDACATEROL [Suspect]
     Active Substance: INDACATEROL
     Dosage: 300 ?G, QD
     Route: 055
  8. ARA 2 [Concomitant]
     Dosage: UNK
  9. CALCIUM [Concomitant]
     Active Substance: CALCIUM
     Dosage: UNK

REACTIONS (1)
  - Insomnia [Unknown]
